FAERS Safety Report 10359808 (Version 26)
Quarter: 2021Q4

REPORT INFORMATION
  Report Type: Report from Study
  Country: CA (occurrence: CA)
  Receive Date: 20140804
  Receipt Date: 20211223
  Transmission Date: 20220303
  Serious: Yes (Hospitalization, Other)
  Sender: FDA-Public Use
  Company Number: PHHY2014CA058372

PATIENT
  Sex: Male

DRUGS (3)
  1. SANDOSTATIN LAR DEPOT [Suspect]
     Active Substance: OCTREOTIDE ACETATE
     Indication: Neuroendocrine tumour
     Dosage: 30 MG, QMO (EVERY FOUR WEEKS)
     Route: 030
     Dates: start: 20130802, end: 20211217
  2. SANDOSTATIN LAR DEPOT [Suspect]
     Active Substance: OCTREOTIDE ACETATE
  3. SANDOSTATIN LAR DEPOT [Suspect]
     Active Substance: OCTREOTIDE ACETATE

REACTIONS (15)
  - Device occlusion [Unknown]
  - Liver disorder [Unknown]
  - Biliary obstruction [Unknown]
  - Biliary tract infection [Unknown]
  - Blood pressure increased [Unknown]
  - Blood pressure systolic increased [Unknown]
  - Blood pressure abnormal [Unknown]
  - Purulence [Unknown]
  - Blood pressure decreased [Unknown]
  - Illness [Unknown]
  - Malaise [Unknown]
  - Ocular icterus [Unknown]
  - Dizziness postural [Unknown]
  - Fatigue [Unknown]
  - Heart rate decreased [Unknown]

NARRATIVE: CASE EVENT DATE: 20130101
